FAERS Safety Report 4913335-0 (Version None)
Quarter: 2006Q1

REPORT INFORMATION
  Report Type: 
  Country: None (occurrence: None)
  Receive Date: 20060215
  Receipt Date: 20050113
  Transmission Date: 20060701
  Serious: Yes (Hospitalization)
  Sender: FDA-Public Use
  Company Number: US-MERCK-0501USA02303

PATIENT
  Sex: Female
  Weight: 114 kg

DRUGS (1)
  1. VIOXX [Suspect]
     Indication: MONARTHRITIS
     Route: 048
     Dates: start: 20020731, end: 20021102

REACTIONS (4)
  - ADVERSE EVENT [None]
  - MIGRAINE [None]
  - PULMONARY EMBOLISM [None]
  - THROMBOSIS [None]
